FAERS Safety Report 6454623-9 (Version None)
Quarter: 2009Q4

REPORT INFORMATION
  Report Type: 
  Country: None (occurrence: None)
  Receive Date: 20091118
  Receipt Date: 20091105
  Transmission Date: 20100525
  Serious: Yes (Hospitalization)
  Sender: FDA-Public Use
  Company Number: 8054249

PATIENT
  Age: 41 Year
  Sex: Female

DRUGS (3)
  1. PHENTERMINE [Suspect]
     Indication: WEIGHT CONTROL
  2. PHENDIMETRAZINE [Suspect]
     Indication: WEIGHT CONTROL
  3. ORAL CONTRACEPTIVES [Concomitant]

REACTIONS (28)
  - ABDOMINAL PAIN UPPER [None]
  - ANTICONVULSANT DRUG LEVEL DECREASED [None]
  - ARTERIAL OCCLUSIVE DISEASE [None]
  - BLOOD ALKALINE PHOSPHATASE INCREASED [None]
  - BLOOD CHOLESTEROL INCREASED [None]
  - BLOOD THYROID STIMULATING HORMONE INCREASED [None]
  - CAROTID ARTERY STENOSIS [None]
  - CEREBRAL INFARCTION [None]
  - CONVULSION [None]
  - FATIGUE [None]
  - GRAND MAL CONVULSION [None]
  - HAEMATURIA [None]
  - HEPATIC ARTERY OCCLUSION [None]
  - HYPERSENSITIVITY [None]
  - HYPERTENSION [None]
  - HYPOKALAEMIA [None]
  - INTRACRANIAL ANEURYSM [None]
  - ISCHAEMIC STROKE [None]
  - LEFT VENTRICULAR HYPERTROPHY [None]
  - LEUKOCYTOSIS [None]
  - MITRAL VALVE PROLAPSE [None]
  - NO THERAPEUTIC RESPONSE [None]
  - PYREXIA [None]
  - RENAL ARTERY OCCLUSION [None]
  - SPLEEN DISORDER [None]
  - SPLENIC INFARCTION [None]
  - STATUS EPILEPTICUS [None]
  - VASCULITIS [None]
